FAERS Safety Report 22054735 (Version 1)
Quarter: 2023Q1

REPORT INFORMATION
  Report Type: Spontaneous
  Country: US (occurrence: US)
  Receive Date: 20230302
  Receipt Date: 20230302
  Transmission Date: 20230417
  Serious: No
  Sender: FDA-Public Use
  Company Number: US-SA-SAC20230228001587

PATIENT
  Age: 48 Year
  Sex: Female

DRUGS (6)
  1. AUBAGIO [Suspect]
     Active Substance: TERIFLUNOMIDE
     Dosage: UNK
  2. CELLCEPT [Concomitant]
     Active Substance: MYCOPHENOLATE MOFETIL
  3. TECFIDERA [Concomitant]
     Active Substance: DIMETHYL FUMARATE
  4. METHOTREXATE [Concomitant]
     Active Substance: METHOTREXATE
  5. TOPIRAMATE [Concomitant]
     Active Substance: TOPIRAMATE
  6. LEUCOVORIN [Concomitant]
     Active Substance: LEUCOVORIN

REACTIONS (1)
  - Condition aggravated [Unknown]
